FAERS Safety Report 8761482 (Version 3)
Quarter: 2013Q2

REPORT INFORMATION
  Report Type: Spontaneous
  Country: US (occurrence: US)
  Receive Date: 20120830
  Receipt Date: 20130522
  Transmission Date: 20140414
  Serious: No
  Sender: FDA-Public Use
  Company Number: US-BIOGENIDEC-2012BI034012

PATIENT
  Age: 42 Year
  Sex: Female

DRUGS (1)
  1. TYSABRI [Suspect]
     Indication: MULTIPLE SCLEROSIS
     Route: 042
     Dates: start: 20120809

REACTIONS (9)
  - Injection site coldness [Recovered/Resolved]
  - Feeling cold [Recovered/Resolved]
  - Infusion site haemorrhage [Recovered/Resolved]
  - Paraesthesia [Not Recovered/Not Resolved]
  - Poor venous access [Recovered/Resolved]
  - Fatigue [Recovered/Resolved]
  - Nausea [Recovered/Resolved]
  - Headache [Recovered/Resolved]
  - Multiple sclerosis [Recovered/Resolved]
